FAERS Safety Report 25274318 (Version 1)
Quarter: 2025Q2

REPORT INFORMATION
  Report Type: Spontaneous
  Country: GR (occurrence: GR)
  Receive Date: 20250506
  Receipt Date: 20250506
  Transmission Date: 20250717
  Serious: Yes (Other)
  Sender: MYLAN
  Company Number: None

PATIENT
  Age: 66 Year
  Sex: Female

DRUGS (16)
  1. LIPITOR [Suspect]
     Active Substance: ATORVASTATIN CALCIUM
     Indication: Type IIa hyperlipidaemia
     Dosage: 1 DOSAGE FORM, QD (1 TAB PER DAY)
     Dates: start: 20200101, end: 20250101
  2. LIPITOR [Suspect]
     Active Substance: ATORVASTATIN CALCIUM
     Dosage: 1 DOSAGE FORM, QD (1 TAB PER DAY)
     Route: 048
     Dates: start: 20200101, end: 20250101
  3. LIPITOR [Suspect]
     Active Substance: ATORVASTATIN CALCIUM
     Dosage: 1 DOSAGE FORM, QD (1 TAB PER DAY)
     Route: 048
     Dates: start: 20200101, end: 20250101
  4. LIPITOR [Suspect]
     Active Substance: ATORVASTATIN CALCIUM
     Dosage: 1 DOSAGE FORM, QD (1 TAB PER DAY)
     Dates: start: 20200101, end: 20250101
  5. SIMVASTATIN [Suspect]
     Active Substance: SIMVASTATIN
     Indication: Type IIa hyperlipidaemia
     Dosage: 1 DOSAGE FORM, QD (1 TAB PER DAY)
     Dates: start: 20200101, end: 20250101
  6. SIMVASTATIN [Suspect]
     Active Substance: SIMVASTATIN
     Dosage: 1 DOSAGE FORM, QD (1 TAB PER DAY)
     Route: 048
     Dates: start: 20200101, end: 20250101
  7. SIMVASTATIN [Suspect]
     Active Substance: SIMVASTATIN
     Dosage: 1 DOSAGE FORM, QD (1 TAB PER DAY)
     Route: 048
     Dates: start: 20200101, end: 20250101
  8. SIMVASTATIN [Suspect]
     Active Substance: SIMVASTATIN
     Dosage: 1 DOSAGE FORM, QD (1 TAB PER DAY)
     Dates: start: 20200101, end: 20250101
  9. CRESTOR [Suspect]
     Active Substance: ROSUVASTATIN CALCIUM
     Indication: Type IIa hyperlipidaemia
     Dosage: 1 DOSAGE FORM, QD (1 TAB PER DAY)
     Dates: start: 20200101, end: 20250101
  10. CRESTOR [Suspect]
     Active Substance: ROSUVASTATIN CALCIUM
     Dosage: 1 DOSAGE FORM, QD (1 TAB PER DAY)
     Route: 048
     Dates: start: 20200101, end: 20250101
  11. CRESTOR [Suspect]
     Active Substance: ROSUVASTATIN CALCIUM
     Dosage: 1 DOSAGE FORM, QD (1 TAB PER DAY)
     Route: 048
     Dates: start: 20200101, end: 20250101
  12. CRESTOR [Suspect]
     Active Substance: ROSUVASTATIN CALCIUM
     Dosage: 1 DOSAGE FORM, QD (1 TAB PER DAY)
     Dates: start: 20200101, end: 20250101
  13. PITAVASTATIN [Suspect]
     Active Substance: PITAVASTATIN
     Indication: Type IIa hyperlipidaemia
     Dosage: 1 DOSAGE FORM, QD (1 TAB PER DAY)
     Dates: start: 20200101, end: 20250101
  14. PITAVASTATIN [Suspect]
     Active Substance: PITAVASTATIN
     Dosage: 1 DOSAGE FORM, QD (1 TAB PER DAY)
     Route: 048
     Dates: start: 20200101, end: 20250101
  15. PITAVASTATIN [Suspect]
     Active Substance: PITAVASTATIN
     Dosage: 1 DOSAGE FORM, QD (1 TAB PER DAY)
     Route: 048
     Dates: start: 20200101, end: 20250101
  16. PITAVASTATIN [Suspect]
     Active Substance: PITAVASTATIN
     Dosage: 1 DOSAGE FORM, QD (1 TAB PER DAY)
     Dates: start: 20200101, end: 20250101

REACTIONS (3)
  - Carcinoembryonic antigen increased [Recovered/Resolved]
  - Drug tolerance [Recovered/Resolved]
  - Transaminases increased [Recovered/Resolved]

NARRATIVE: CASE EVENT DATE: 20200101
